FAERS Safety Report 5654925-X (Version None)
Quarter: 2008Q1

REPORT INFORMATION
  Report Type: 
  Country: None (occurrence: None)
  Receive Date: 20080307
  Receipt Date: 20070911
  Transmission Date: 20080703
  Serious: No
  Sender: FDA-Public Use
  Company Number: A0680904A

PATIENT
  Age: 87 Year
  Sex: Male

DRUGS (12)
  1. REQUIP [Suspect]
     Dosage: .25MG PER DAY
     Route: 048
     Dates: start: 20070831, end: 20070906
  2. TENORMIN [Concomitant]
  3. MAXZIDE [Concomitant]
  4. ZOCOR [Concomitant]
  5. POTASSIUM CHLORIDE [Concomitant]
  6. SYNTHROID [Concomitant]
  7. PLENDIL [Concomitant]
  8. DIOVAN [Concomitant]
  9. ACTONEL [Concomitant]
  10. MAGNESIUM [Concomitant]
  11. CALCIUM [Concomitant]
  12. ASPIRIN [Concomitant]

REACTIONS (5)
  - BACK PAIN [None]
  - GAIT DISTURBANCE [None]
  - MUSCULOSKELETAL PAIN [None]
  - MUSCULOSKELETAL STIFFNESS [None]
  - SOMNOLENCE [None]
